FAERS Safety Report 8247084-0 (Version None)
Quarter: 2012Q1

REPORT INFORMATION
  Report Type: 
  Country: None (occurrence: None)
  Receive Date: 20120329
  Receipt Date: 20120329
  Transmission Date: 20120608
  Serious: Yes (Hospitalization)
  Sender: FDA-Public Use
  Company Number: None

PATIENT
  Age: 64 Year
  Sex: Male

DRUGS (2)
  1. ASPIRIN [Suspect]
     Indication: CORONARY ARTERY DISEASE
     Dosage: ASPIRIN QDAY PO
     Route: 048
     Dates: start: 20111201
  2. LIPITOR [Suspect]
     Dosage: LIPITOR Q DAY PO
     Route: 048
     Dates: start: 20111201

REACTIONS (1)
  - CORONARY ARTERY BYPASS [None]
